FAERS Safety Report 5038833-3 (Version None)
Quarter: 2006Q2

REPORT INFORMATION
  Report Type: 
  Country: None (occurrence: None)
  Receive Date: 20060627
  Receipt Date: 20060627
  Transmission Date: 20061013
  Serious: Yes (Hospitalization)
  Sender: FDA-Public Use
  Company Number: None

PATIENT
  Age: 64 Year
  Sex: Male
  Weight: 71.2147 kg

DRUGS (2)
  1. FUROSEMIDE [Suspect]
     Dosage: 40 MG QD PRN SWELLING PO
     Route: 048
     Dates: start: 20060130, end: 20060501
  2. SPIRONOLACTONE [Suspect]
     Dosage: 25 MG QD PO
     Route: 048

REACTIONS (8)
  - DEHYDRATION [None]
  - EXCORIATION [None]
  - EYE ROLLING [None]
  - HYPERHIDROSIS [None]
  - LOSS OF CONSCIOUSNESS [None]
  - SYNCOPE [None]
  - TOOTH INJURY [None]
  - VOMITING [None]
